FAERS Safety Report 6829457-3 (Version None)
Quarter: 2010Q3

REPORT INFORMATION
  Report Type: 
  Country: None (occurrence: None)
  Receive Date: 20100709
  Receipt Date: 20070313
  Transmission Date: 20110219
  Serious: No
  Sender: FDA-Public Use
  Company Number: US-PFIZER INC-2007019996

PATIENT
  Age: 48 Year
  Sex: Female
  Weight: 68.04 kg

DRUGS (9)
  1. VARENICLINE [Suspect]
     Indication: SMOKING CESSATION THERAPY
     Dates: start: 20070309
  2. TRICOR [Concomitant]
     Indication: BLOOD CHOLESTEROL INCREASED
  3. VALIUM [Concomitant]
  4. WELLBUTRIN SR [Concomitant]
     Indication: SMOKING CESSATION THERAPY
  5. LEVOXYL [Concomitant]
     Indication: THYROID DISORDER
  6. VICODIN [Concomitant]
  7. ALBUTEROL [Concomitant]
     Indication: ASTHMA
  8. POTASSIUM [Concomitant]
  9. CALCIUM CARBONATE [Concomitant]

REACTIONS (8)
  - CHEST PAIN [None]
  - DIZZINESS [None]
  - DYSPNOEA [None]
  - FEELING HOT [None]
  - MUSCLE SPASMS [None]
  - NAUSEA [None]
  - SLEEP DISORDER [None]
  - SWEAT GLAND DISORDER [None]
